FAERS Safety Report 5166957-9 (Version None)
Quarter: 2006Q4

REPORT INFORMATION
  Report Type: 
  Country: None (occurrence: None)
  Receive Date: 20061207
  Receipt Date: 20061121
  Transmission Date: 20070319
  Serious: Yes (Other)
  Sender: FDA-Public Use
  Company Number: JP-SANOFI-SYNTHELABO-A01200610187

PATIENT
  Age: 87 Year
  Sex: Female
  Weight: 36 kg

DRUGS (6)
  1. LAC B [Concomitant]
     Indication: DRUG USE FOR UNKNOWN INDICATION
     Dosage: 3 G
     Route: 048
     Dates: start: 20050601
  2. ALDACTONE [Concomitant]
     Indication: DRUG USE FOR UNKNOWN INDICATION
     Dosage: 12.5 MG
     Route: 048
     Dates: start: 20050601
  3. LASIX [Concomitant]
     Indication: DRUG USE FOR UNKNOWN INDICATION
     Dosage: 10 MG
     Route: 048
     Dates: start: 20060801
  4. MYSLEE [Suspect]
     Indication: INSOMNIA
     Dosage: 5 MG
     Route: 048
     Dates: start: 20050601, end: 20060811
  5. MYSLEE [Suspect]
     Dosage: 2.5 MG
     Route: 048
     Dates: start: 20060816, end: 20060901
  6. EXCELASE [Concomitant]
     Indication: DRUG USE FOR UNKNOWN INDICATION
     Dosage: 3 DF
     Route: 048
     Dates: start: 20050601

REACTIONS (5)
  - APNOEA [None]
  - CARDIAC FAILURE [None]
  - CONDITION AGGRAVATED [None]
  - DRUG INEFFECTIVE [None]
  - RESPIRATORY DEPRESSION [None]
